FAERS Safety Report 14855921 (Version 1)
Quarter: 2018Q2

REPORT INFORMATION
  Report Type: Spontaneous
  Country: US (occurrence: US)
  Receive Date: 20180507
  Receipt Date: 20180507
  Transmission Date: 20180711
  Serious: No
  Sender: FDA-Public Use
  Company Number: US-IPSEN BIOPHARMACEUTICALS, INC.-2018-00872

PATIENT
  Age: 70 Year
  Sex: Female
  Weight: 66.28 kg

DRUGS (20)
  1. CALCIUM CARBONATE. [Concomitant]
     Active Substance: CALCIUM CARBONATE
  2. ASPIRIN EC [Concomitant]
     Active Substance: ASPIRIN
  3. XERMELO [Suspect]
     Active Substance: TELOTRISTAT ETHYL
     Route: 048
     Dates: start: 20171121
  4. SYNTHROID [Concomitant]
     Active Substance: LEVOTHYROXINE SODIUM
  5. OXYCONTIN [Concomitant]
     Active Substance: OXYCODONE HYDROCHLORIDE
  6. OXYCODONE [Concomitant]
     Active Substance: OXYCODONE
  7. XERMELO [Suspect]
     Active Substance: TELOTRISTAT ETHYL
     Indication: CARCINOID SYNDROME
     Route: 048
     Dates: start: 20170411, end: 201711
  8. VITAMIN D [Concomitant]
     Active Substance: CHOLECALCIFEROL
  9. K-DUR [Concomitant]
     Active Substance: POTASSIUM CHLORIDE
  10. IMODIUM [Concomitant]
     Active Substance: LOPERAMIDE HYDROCHLORIDE
  11. DIFLUNISAL. [Concomitant]
     Active Substance: DIFLUNISAL
  12. PREDNISONE. [Concomitant]
     Active Substance: PREDNISONE
  13. VITAMIN B12 [Concomitant]
     Active Substance: CYANOCOBALAMIN
  14. FERROUS SULFATE. [Concomitant]
     Active Substance: FERROUS SULFATE
  15. PERTZYE [Concomitant]
     Active Substance: PANCRELIPASE AMYLASE\PANCRELIPASE LIPASE\PANCRELIPASE PROTEASE
  16. FERROUS SULFATE. [Concomitant]
     Active Substance: FERROUS SULFATE
  17. SOMATULINE [Suspect]
     Active Substance: LANREOTIDE ACETATE
     Indication: PRODUCT USED FOR UNKNOWN INDICATION
     Dosage: 120 MG/ 0.5 ML
     Route: 065
     Dates: start: 20170629
  18. LASIX [Concomitant]
     Active Substance: FUROSEMIDE
  19. HYDROXYCHLOROQUINE [Concomitant]
     Active Substance: HYDROXYCHLOROQUINE
  20. KEFLEX [Concomitant]
     Active Substance: CEPHALEXIN

REACTIONS (7)
  - Vertigo positional [Unknown]
  - Abdominal pain [Unknown]
  - Abdominal distension [Unknown]
  - Sinusitis [Recovered/Resolved]
  - Balance disorder [Unknown]
  - Off label use [Unknown]
  - Tooth extraction [Unknown]

NARRATIVE: CASE EVENT DATE: 201709
